FAERS Safety Report 8092129-4 (Version None)
Quarter: 2012Q1

REPORT INFORMATION
  Report Type: 
  Country: None (occurrence: None)
  Receive Date: 20120129
  Receipt Date: 20111104
  Transmission Date: 20120608
  Serious: Yes (Other)
  Sender: FDA-Public Use
  Company Number: US-ABBOTT-11P-163-0871879-00

PATIENT
  Sex: Male
  Weight: 88.53 kg

DRUGS (3)
  1. METHOTREXATE [Concomitant]
     Indication: RHEUMATOID ARTHRITIS
  2. PREDNISONE TAB [Concomitant]
     Indication: RHEUMATOID ARTHRITIS
  3. HUMIRA [Suspect]
     Indication: RHEUMATOID ARTHRITIS
     Dates: end: 20080101

REACTIONS (5)
  - SQUAMOUS CELL CARCINOMA OF SKIN [None]
  - DRUG INEFFECTIVE [None]
  - PAIN [None]
  - RHEUMATOID ARTHRITIS [None]
  - ARTHROPATHY [None]
